FAERS Safety Report 10380267 (Version 2)
Quarter: 2014Q3

REPORT INFORMATION
  Report Type: Spontaneous
  Country: US (occurrence: US)
  Receive Date: 20140813
  Receipt Date: 20140813
  Transmission Date: 20150326
  Serious: Yes (Hospitalization, Other)
  Sender: FDA-Public Use
  Company Number: US-AMGEN-USASP2014038882

PATIENT
  Age: 71 Year
  Sex: Female
  Weight: 52.56 kg

DRUGS (13)
  1. ELIDEL [Concomitant]
     Active Substance: PIMECROLIMUS
  2. VITAMIN B COMPLEX [Concomitant]
     Active Substance: CYANOCOBALAMIN\DEXPANTHENOL\NIACINAMIDE\PYRIDOXINE HYDROCHLORIDE\RIBOFLAVIN 5^-PHOSPHATE SODIUM\THIAMINE HYDROCHLORIDE\VITAMIN B COMPLEX
     Dosage: UNK UNK, QD
     Route: 048
  3. LIPITOR [Concomitant]
     Active Substance: ATORVASTATIN CALCIUM
     Route: 048
  4. CALCITONIN [Concomitant]
     Active Substance: CALCITONIN
  5. CHOLECALCIFEROL [Concomitant]
     Active Substance: CHOLECALCIFEROL
     Dosage: 1000 UNIT, QD
     Route: 048
  6. AMITRIPTYLINE [Concomitant]
     Active Substance: AMITRIPTYLINE
     Dosage: 10 MG, UNK
     Route: 048
  7. B COMPLEX                          /00322001/ [Concomitant]
     Route: 048
  8. ASPIRIN 81 [Concomitant]
     Dosage: 81 MG, UNK
     Route: 048
  9. CALCIUM [Concomitant]
     Active Substance: CALCIUM
     Route: 048
  10. FERROUS SULFATE [Concomitant]
     Active Substance: FERROUS SULFATE\FERROUS SULFATE, DRIED
     Dosage: 325 MG, BID
     Route: 048
  11. OSTEO BI-FLEX                      /01431201/ [Concomitant]
     Route: 048
  12. PROLIA [Suspect]
     Active Substance: DENOSUMAB
     Indication: OSTEOPOROSIS POSTMENOPAUSAL
     Dosage: UNK
     Route: 065
     Dates: start: 20130521
  13. EVISTA [Concomitant]
     Active Substance: RALOXIFENE HYDROCHLORIDE
     Dosage: UNK
     Route: 048
     Dates: end: 20140523

REACTIONS (10)
  - Cataract [Unknown]
  - Dry eye [Unknown]
  - Eye pain [Unknown]
  - Anaemia [Recovered/Resolved]
  - Eye pruritus [Unknown]
  - Blindness [Unknown]
  - Diplopia [Unknown]
  - Back pain [Recovered/Resolved]
  - Lacrimation increased [Unknown]
  - Photophobia [Unknown]

NARRATIVE: CASE EVENT DATE: 20140409
